FAERS Safety Report 8955806 (Version 1)
Quarter: 2012Q4

REPORT INFORMATION
  Report Type: 
  Country: BG (occurrence: BG)
  Receive Date: 20121210
  Receipt Date: 20121210
  Transmission Date: 20130627
  Serious: Yes (Death)
  Sender: FDA-Public Use
  Company Number: BG-ACTELION-A-CH2012-75644

PATIENT
  Age: 46 Year
  Sex: Female

DRUGS (3)
  1. TRACLEER [Suspect]
     Indication: PULMONARY ARTERIAL HYPERTENSION
     Dosage: 62.5 mg, bid
     Route: 048
     Dates: start: 201209
  2. HYDREA [Concomitant]
     Dosage: UNK, tid
     Route: 048
  3. TRIFAS [Concomitant]
     Dosage: UNK
     Route: 048
     Dates: start: 201209

REACTIONS (1)
  - Essential thrombocythaemia [Fatal]
